FAERS Safety Report 4782905-5 (Version None)
Quarter: 2005Q3

REPORT INFORMATION
  Report Type: 
  Country: None (occurrence: None)
  Receive Date: 20050929
  Receipt Date: 20050920
  Transmission Date: 20060218
  Serious: Yes (Other)
  Sender: FDA-Public Use
  Company Number: 200518299GDDC

PATIENT
  Age: 40 Year
  Sex: Female

DRUGS (2)
  1. ARAVA [Suspect]
     Indication: RHEUMATOID ARTHRITIS
     Route: 048
     Dates: start: 20050801, end: 20050801
  2. PREDNISOLONE [Concomitant]

REACTIONS (6)
  - DRY EYE [None]
  - DYSPNOEA [None]
  - FATIGUE [None]
  - PRURITUS [None]
  - RASH [None]
  - VISUAL ACUITY REDUCED [None]
